FAERS Safety Report 7711938-1 (Version None)
Quarter: 2011Q3

REPORT INFORMATION
  Report Type: 
  Country: None (occurrence: None)
  Receive Date: 20110826
  Receipt Date: 20110815
  Transmission Date: 20111222
  Serious: No
  Sender: FDA-Public Use
  Company Number: US-B.I. PHARMACEUTICALS,INC./RIDGEFIELD-2011-BP-17959BP

PATIENT
  Age: 76 Year
  Sex: Female
  Weight: 69.85 kg

DRUGS (6)
  1. ATENOLOL [Concomitant]
     Dosage: 50 MG
  2. PRADAXA [Suspect]
     Indication: ATRIAL FIBRILLATION
     Dosage: 300 MG
     Route: 048
     Dates: start: 20110601, end: 20110714
  3. CARDIZEM CD [Concomitant]
     Dosage: 120 MG
  4. LIPITOR [Concomitant]
  5. SYNTHROID [Concomitant]
     Dosage: 25 MCG
  6. XANAX [Concomitant]

REACTIONS (2)
  - ARTHRALGIA [None]
  - ACTIVITIES OF DAILY LIVING IMPAIRED [None]
